FAERS Safety Report 5762324-5 (Version None)
Quarter: 2008Q2

REPORT INFORMATION
  Report Type: 
  Country: None (occurrence: None)
  Receive Date: 20080609
  Receipt Date: 20080530
  Transmission Date: 20081010
  Serious: Yes (Other)
  Sender: FDA-Public Use
  Company Number: PHHY2008JP09698

PATIENT
  Sex: Female

DRUGS (1)
  1. ZADITEN [Suspect]
     Dosage: 1 MG/DAY
     Route: 048
     Dates: end: 20080528

REACTIONS (2)
  - BLOOD PRESSURE DECREASED [None]
  - LOSS OF CONSCIOUSNESS [None]
